FAERS Safety Report 14089329 (Version 5)
Quarter: 2018Q1

REPORT INFORMATION
  Report Type: Spontaneous
  Country: US (occurrence: US)
  Receive Date: 20171014
  Receipt Date: 20180206
  Transmission Date: 20180508
  Serious: Yes (Hospitalization)
  Sender: FDA-Public Use
  Company Number: PHEH2017US033325

PATIENT
  Age: 69 Year
  Sex: Male
  Weight: 71.2 kg

DRUGS (7)
  1. LEVOTHYROXINE. [Concomitant]
     Active Substance: LEVOTHYROXINE
     Indication: PRODUCT USED FOR UNKNOWN INDICATION
     Route: 065
  2. POTASSIUM [Concomitant]
     Active Substance: POTASSIUM
     Indication: PRODUCT USED FOR UNKNOWN INDICATION
     Route: 048
  3. FLAGYL [Concomitant]
     Active Substance: METRONIDAZOLE\METRONIDAZOLE HYDROCHLORIDE
     Indication: PRODUCT USED FOR UNKNOWN INDICATION
     Route: 048
  4. LOVENOX [Concomitant]
     Active Substance: ENOXAPARIN SODIUM
     Indication: PRODUCT USED FOR UNKNOWN INDICATION
     Route: 058
  5. LENVATINIB [Suspect]
     Active Substance: LENVATINIB
     Indication: RENAL CANCER
     Dosage: 18 MG, QD
     Route: 048
     Dates: start: 20171006, end: 20171208
  6. AFINITOR [Suspect]
     Active Substance: EVEROLIMUS
     Indication: RENAL CELL CARCINOMA
     Dosage: UNK UNK, QD
     Route: 048
     Dates: start: 201710, end: 20171208
  7. AFINITOR [Suspect]
     Active Substance: EVEROLIMUS
     Dosage: AT REDUCED DOSE
     Route: 048
     Dates: start: 20171224

REACTIONS (13)
  - Clostridium difficile colitis [Unknown]
  - Nausea [Unknown]
  - Weight decreased [Unknown]
  - Arthralgia [Unknown]
  - Dehydration [Unknown]
  - Acute kidney injury [Recovering/Resolving]
  - Abdominal pain [Unknown]
  - Dysphonia [Unknown]
  - Acne [Unknown]
  - Fatigue [Unknown]
  - Blood creatinine increased [Unknown]
  - Decreased appetite [Unknown]
  - Loose tooth [Unknown]

NARRATIVE: CASE EVENT DATE: 20171208
